FAERS Safety Report 9283360 (Version 1)
Quarter: 2013Q2

REPORT INFORMATION
  Report Type: Spontaneous
  Country: US (occurrence: US)
  Receive Date: 20130510
  Receipt Date: 20130510
  Transmission Date: 20140414
  Serious: No
  Sender: FDA-Public Use
  Company Number: US-GLAXOSMITHKLINE-A1000804A

PATIENT
  Sex: Female
  Weight: 54.5 kg

DRUGS (13)
  1. TYKERB [Suspect]
     Indication: PRODUCT USED FOR UNKNOWN INDICATION
     Dosage: 250MG SEE DOSAGE TEXT
     Route: 048
  2. XELODA [Concomitant]
  3. ZOMETA [Concomitant]
  4. MULTIVITAMIN [Concomitant]
  5. VITAMIN C [Concomitant]
  6. CALCIUM 500 [Concomitant]
  7. PROBIOTIC [Concomitant]
  8. CLARITIN [Concomitant]
  9. NASONEX [Concomitant]
  10. DIOVAN [Concomitant]
  11. CARVEDILOL [Concomitant]
  12. METHADONE [Concomitant]
  13. OMEPRAZOLE [Concomitant]

REACTIONS (1)
  - Diarrhoea [Unknown]
